FAERS Safety Report 25530372 (Version 1)
Quarter: 2025Q3

REPORT INFORMATION
  Report Type: Spontaneous
  Country: US (occurrence: US)
  Receive Date: 20250708
  Receipt Date: 20250708
  Transmission Date: 20251021
  Serious: No
  Sender: SANOFI AVENTIS
  Company Number: US-SA-2025SA191864

PATIENT
  Sex: Male
  Weight: 86.36 kg

DRUGS (2)
  1. DUPIXENT [Suspect]
     Active Substance: DUPILUMAB
     Indication: Neurodermatitis
     Dosage: 1 DF, QOW
     Route: 058
  2. NEMLUVIO [Concomitant]
     Active Substance: NEMOLIZUMAB-ILTO

REACTIONS (4)
  - Sleep disorder due to a general medical condition [Unknown]
  - Condition aggravated [Unknown]
  - Skin discolouration [Unknown]
  - Rash [Unknown]
